FAERS Safety Report 16751555 (Version 1)
Quarter: 2019Q3

REPORT INFORMATION
  Report Type: Spontaneous
  Country: US (occurrence: US)
  Receive Date: 20190828
  Receipt Date: 20190828
  Transmission Date: 20191005
  Serious: Yes (Other)
  Sender: FDA-Public Use
  Company Number: US-ENDO PHARMACEUTICALS INC-2019-103849

PATIENT
  Sex: Male
  Weight: 72.57 kg

DRUGS (7)
  1. OMEGA 3 FISH OIL                   /01334101/ [Concomitant]
     Active Substance: FISH OIL
     Indication: VITAMIN SUPPLEMENTATION
     Dosage: 1200 MG, BID
     Route: 048
     Dates: start: 2013
  2. TURMERIC CURCUMIN                  /01079601/ [Concomitant]
     Indication: VITAMIN SUPPLEMENTATION
     Dosage: 1000 MG (1-2 CAPSULES), DAILY
     Route: 048
     Dates: start: 2016
  3. ULTRA C [Concomitant]
     Indication: VITAMIN SUPPLEMENTATION
     Dosage: 500 MG, DAILY
     Route: 048
     Dates: start: 2017
  4. GLUCOSAMINE CHONDROITIN MSM [Concomitant]
     Indication: VITAMIN SUPPLEMENTATION
     Dosage: 1-2 TABLETS, DAILY
     Route: 048
     Dates: start: 2016
  5. PREDNISONE. [Suspect]
     Active Substance: PREDNISONE
     Indication: RHEUMATOID ARTHRITIS
     Dosage: UNK UNKNOWN, UNKNOWN STOPPED THE PREDNISONE GRADUALLY BY TAPERING OFF BY A HALF A PILL
     Route: 065
     Dates: start: 201706
  6. ULTRA MAN 50+ MULTIVITAMIN [Concomitant]
     Indication: VITAMIN SUPPLEMENTATION
     Dosage: 1 DF, UNK
     Route: 048
  7. CALCIUM CITRATE WITH VITAMIN D3 [Concomitant]
     Active Substance: CALCIUM CITRATE\CHOLECALCIFEROL
     Indication: VITAMIN SUPPLEMENTATION
     Dosage: 1 DF, DAILY
     Route: 048
     Dates: start: 2016

REACTIONS (1)
  - Blood glucose increased [Unknown]
